FAERS Safety Report 13155428 (Version 4)
Quarter: 2018Q1

REPORT INFORMATION
  Report Type: Report from Study
  Country: DE (occurrence: DE)
  Receive Date: 20170126
  Receipt Date: 20180215
  Transmission Date: 20180508
  Serious: Yes (Hospitalization)
  Sender: FDA-Public Use
  Company Number: DE-TAKEDA-2015TUS015991

PATIENT
  Age: 58 Year
  Sex: Male
  Weight: 88 kg

DRUGS (16)
  1. VEDOLIZUMAB [Suspect]
     Active Substance: VEDOLIZUMAB
     Indication: COLITIS ULCERATIVE
     Dosage: 300 MG, UNK
     Route: 065
     Dates: start: 20150811
  2. OXYCODON [Concomitant]
     Active Substance: OXYCODONE
     Dosage: 10 MG, QD
  3. BETNESOL [Concomitant]
     Active Substance: BETAMETHASONE
     Indication: COLITIS ULCERATIVE
     Dosage: UNK
     Dates: start: 2015
  4. MACROGOL [Concomitant]
     Active Substance: POLYETHYLENE GLYCOLS
     Dosage: UNK UNK, QD
  5. KALZIUM BRAUSE [Concomitant]
     Dosage: 1000 MG, UNK
  6. ACETYLSALICYLIC ACID [Concomitant]
     Active Substance: ASPIRIN
     Indication: CARDIAC DISORDER
     Dosage: 100 MG, QD
  7. METOPROLOL. [Concomitant]
     Active Substance: METOPROLOL
     Indication: ATRIAL FIBRILLATION
     Dosage: 95 MG, QD
  8. LOPERAMIDE [Concomitant]
     Active Substance: LOPERAMIDE
     Indication: DIARRHOEA
     Dosage: 2 MG, UNK
  9. VIGANTOLETTEN [Concomitant]
     Active Substance: CHOLECALCIFEROL
     Dosage: 2000 IU, QD
  10. TOREM [Concomitant]
     Active Substance: TORSEMIDE
     Indication: OEDEMA
     Dosage: 5 MG, UNK
  11. BISOPROLOL [Concomitant]
     Active Substance: BISOPROLOL
     Indication: CARDIAC DISORDER
     Dosage: 10 MG, QD
  12. PREDNISOLONE. [Concomitant]
     Active Substance: PREDNISOLONE
     Indication: COLITIS ULCERATIVE
     Dosage: UNK, QD
     Dates: start: 2015
  13. ELIQUIS [Concomitant]
     Active Substance: APIXABAN
     Indication: ATRIAL FIBRILLATION
     Dosage: 10 MG, QD
  14. TOREM [Concomitant]
     Active Substance: TORSEMIDE
     Indication: CARDIAC DISORDER
     Dosage: 10 MG, UNK
  15. PANTOPRAZOLE [Concomitant]
     Active Substance: PANTOPRAZOLE
     Indication: COLITIS ULCERATIVE
     Dosage: 20 MG, QD
     Dates: start: 2015
  16. METAMIZOLE [Concomitant]
     Active Substance: METAMIZOLE
     Dosage: 2000 MG, QD

REACTIONS (2)
  - Gastroenteritis [Recovered/Resolved]
  - Atrial fibrillation [Recovered/Resolved]

NARRATIVE: CASE EVENT DATE: 20150725
